FAERS Safety Report 10062607 (Version 1)
Quarter: 2014Q2

REPORT INFORMATION
  Report Type: Spontaneous
  Country: US (occurrence: US)
  Receive Date: 20140407
  Receipt Date: 20140407
  Transmission Date: 20141212
  Serious: Yes (Life-Threatening, Hospitalization)
  Sender: FDA-Public Use
  Company Number: US-ACTAVIS-2014-06247

PATIENT
  Age: 61 Year
  Sex: Female

DRUGS (2)
  1. OXYCODONE HYDROCHLORIDE (ATLLC) [Suspect]
     Indication: OVERDOSE
     Dosage: 60 MG, SINGLE
     Route: 048
  2. OXYCODONE HYDROCHLORIDE (ATLLC) [Suspect]
     Indication: PRODUCT USED FOR UNKNOWN INDICATION

REACTIONS (12)
  - Right ventricular failure [Recovered/Resolved]
  - Respiratory failure [Recovered/Resolved]
  - Pulmonary arterial pressure increased [Recovered/Resolved]
  - Stress cardiomyopathy [Recovered/Resolved]
  - Shock [Recovered/Resolved]
  - Electrocardiogram T wave inversion [Recovered/Resolved]
  - Bundle branch block right [Recovered/Resolved]
  - Tachycardia [Recovered/Resolved]
  - Multi-organ failure [Recovered/Resolved]
  - Respiratory acidosis [Recovered/Resolved]
  - Metabolic acidosis [Recovered/Resolved]
  - Overdose [Recovered/Resolved]
